FAERS Safety Report 12288851 (Version 1)
Quarter: 2016Q2

REPORT INFORMATION
  Report Type: Spontaneous
  Country: US (occurrence: US)
  Receive Date: 20160421
  Receipt Date: 20160421
  Transmission Date: 20160815
  Serious: No
  Sender: FDA-Public Use
  Company Number: US-JNJFOC-20160312761

PATIENT
  Age: 52 Year
  Sex: Female
  Weight: 58.06 kg

DRUGS (3)
  1. LOSARTAN. [Concomitant]
     Active Substance: LOSARTAN
     Indication: BLOOD PRESSURE ABNORMAL
     Route: 065
     Dates: start: 2013
  2. ASPIRIN. [Concomitant]
     Active Substance: ASPIRIN
     Indication: BLOOD PRESSURE ABNORMAL
     Route: 065
     Dates: start: 2013
  3. KETOCONAZOLE. [Suspect]
     Active Substance: KETOCONAZOLE
     Indication: ALOPECIA
     Route: 061

REACTIONS (5)
  - Off label use [Unknown]
  - Alopecia [Not Recovered/Not Resolved]
  - Dry skin [Unknown]
  - Agitation [Unknown]
  - Product use issue [Unknown]

NARRATIVE: CASE EVENT DATE: 2016
